FAERS Safety Report 4299025-9 (Version None)
Quarter: 2004Q1

REPORT INFORMATION
  Report Type: 
  Country: None (occurrence: None)
  Receive Date: 20040217
  Receipt Date: 20040206
  Transmission Date: 20041129
  Serious: Yes (Other)
  Sender: FDA-Public Use
  Company Number: 2003125716

PATIENT
  Age: 72 Year
  Sex: Female

DRUGS (1)
  1. VIAGRA [Suspect]
     Indication: PULMONARY HYPERTENSION
     Dosage: 300 MG (TID), ORAL
     Route: 048
     Dates: start: 20030801

REACTIONS (2)
  - DISEASE PROGRESSION [None]
  - RECTAL PROLAPSE [None]
